FAERS Safety Report 20712109 (Version 1)
Quarter: 2022Q2

REPORT INFORMATION
  Report Type: Other
  Country: None (occurrence: US)
  Receive Date: 20220414
  Receipt Date: 20220414
  Transmission Date: 20220721
  Serious: No
  Sender: FDA-Public Use
  Company Number: US-Hangzhou Minsheng Binjiang Pharmaceutical Co., Ltd.-2127784

PATIENT

DRUGS (1)
  1. ALENDRONATE SODIUM [Suspect]
     Active Substance: ALENDRONATE SODIUM

REACTIONS (4)
  - Cough [None]
  - Throat irritation [None]
  - Product solubility abnormal [None]
  - Product administration error [None]
